FAERS Safety Report 23045260 (Version 1)
Quarter: 2023Q4

REPORT INFORMATION
  Report Type: Spontaneous
  Country: CN (occurrence: CN)
  Receive Date: 20231009
  Receipt Date: 20231009
  Transmission Date: 20240110
  Serious: Yes (Life-Threatening, Hospitalization, Other)
  Sender: FDA-Public Use
  Company Number: CN-AMNEAL PHARMACEUTICALS-2023-AMRX-03412

PATIENT
  Age: 45 Year
  Sex: Male

DRUGS (5)
  1. ALBENZA [Suspect]
     Active Substance: ALBENDAZOLE
     Indication: Echinococciasis
     Dosage: 400 MILLIGRAM, BID
     Route: 065
     Dates: start: 20220518, end: 20220608
  2. PRAZIQUANTEL [Suspect]
     Active Substance: PRAZIQUANTEL
     Indication: Echinococciasis
     Dosage: 600 MILLIGRAM, QD
     Route: 065
     Dates: start: 20220526, end: 20220608
  3. ENOXAPARIN [Concomitant]
     Active Substance: ENOXAPARIN
     Indication: Pulmonary embolism
     Dosage: 4000 IU, BID
     Route: 065
  4. TORSEMIDE [Concomitant]
     Active Substance: TORSEMIDE
     Indication: Oedema
     Dosage: 10 MG, QD
     Route: 065
  5. SPIRONOLACTONE [Concomitant]
     Active Substance: SPIRONOLACTONE
     Indication: Oedema
     Dosage: 20 MG, QD
     Route: 065

REACTIONS (7)
  - Blood bilirubin increased [Unknown]
  - Pancytopenia [Recovering/Resolving]
  - Myelosuppression [Recovering/Resolving]
  - Abdominal pain upper [Recovered/Resolved]
  - Pyrexia [Unknown]
  - Diarrhoea [Recovered/Resolved]
  - Alopecia [Unknown]

NARRATIVE: CASE EVENT DATE: 20220523
